FAERS Safety Report 20593490 (Version 1)
Quarter: 2022Q1

REPORT INFORMATION
  Report Type: Spontaneous
  Country: US (occurrence: None)
  Receive Date: 20220315
  Receipt Date: 20220315
  Transmission Date: 20220424
  Serious: No
  Sender: FDA-Public Use
  Company Number: US-ROCHE-2902653

PATIENT
  Age: 36 Year
  Sex: Female
  Weight: 107.37 kg

DRUGS (11)
  1. XOLAIR [Suspect]
     Active Substance: OMALIZUMAB
     Indication: Chronic spontaneous urticaria
     Dosage: ONGOING: NO
     Route: 058
     Dates: start: 20210617, end: 20210719
  2. BENADRYL ALLERGY [Concomitant]
     Active Substance: DIPHENHYDRAMINE HYDROCHLORIDE
     Indication: Urticaria
     Dosage: AS NEEDED ;ONGOING: UNKNOWN
     Route: 048
  3. EPIPEN [Concomitant]
     Active Substance: EPINEPHRINE
     Dosage: AS NEEDED, AUTO-INJECTOR ;ONGOING: UNKNOWN
     Route: 030
  4. HYDROXYZINE HYDROCHLORIDE [Concomitant]
     Active Substance: HYDROXYZINE HYDROCHLORIDE
     Indication: Urticaria
     Dosage: UNKNOWN
     Route: 048
  5. LATISSE [Concomitant]
     Active Substance: BIMATOPROST
     Dosage: 1 DROP AT BEDTIME ;ONGOING: UNKNOWN
     Route: 047
     Dates: start: 2021
  6. VITAMINS [Concomitant]
     Active Substance: VITAMINS
     Dosage: UNKNOWN
     Route: 048
  7. PARAGARD T 380A [Concomitant]
     Active Substance: COPPER
     Indication: Contraception
     Dosage: UNKNOWN
     Route: 015
  8. PROCHLORPERAZINE MALEATE [Concomitant]
     Active Substance: PROCHLORPERAZINE MALEATE
     Indication: Nausea
     Dosage: AS NEEDED ;ONGOING: YES
     Route: 048
     Dates: start: 20161105
  9. PROZAC [Concomitant]
     Active Substance: FLUOXETINE HYDROCHLORIDE
     Indication: Depression
     Dosage: UNKNOWN
     Route: 048
  10. STOOL SOFTENER (DOCUSATE) [Concomitant]
     Active Substance: DOCUSATE
     Dosage: UNKNOWN
     Route: 048
     Dates: start: 202105
  11. NATURE^S BOUNTY VITAMIN C [Concomitant]
     Dosage: UNKNOWN
     Route: 048
     Dates: start: 20210412

REACTIONS (1)
  - Chest pain [Recovered/Resolved]

NARRATIVE: CASE EVENT DATE: 20210719
